FAERS Safety Report 8550092-3 (Version None)
Quarter: 2012Q3

REPORT INFORMATION
  Report Type: 
  Country: None (occurrence: None)
  Receive Date: 20120730
  Receipt Date: 20120719
  Transmission Date: 20120928
  Serious: Yes (Other)
  Sender: FDA-Public Use
  Company Number: US-ASTRAZENECA-2012SE50863

PATIENT
  Sex: Female

DRUGS (2)
  1. ENTOCORT EC [Suspect]
     Dosage: GENERIC
     Route: 048
  2. ENTOCORT EC [Suspect]
     Indication: CROHN'S DISEASE
     Route: 048

REACTIONS (3)
  - PRECANCEROUS MUCOSAL LESION [None]
  - ADVERSE EVENT [None]
  - REACTION TO DRUG EXCIPIENTS [None]
